FAERS Safety Report 21641262 (Version 2)
Quarter: 2022Q4

REPORT INFORMATION
  Report Type: Report from Study
  Country: MX (occurrence: MX)
  Receive Date: 20221125
  Receipt Date: 20221201
  Transmission Date: 20230113
  Serious: Yes (Death)
  Sender: FDA-Public Use
  Company Number: MX-002147023-NVSC2022MX265153

PATIENT
  Age: 90 Year
  Sex: Female
  Weight: 40 kg

DRUGS (2)
  1. ENTRESTO [Suspect]
     Active Substance: SACUBITRIL\VALSARTAN
     Indication: Cardiac disorder
     Dosage: 0.5 DOSAGE FORM, QD (STARTED ABOUT 6 MONTHS AGO)
     Route: 048
     Dates: start: 20220419, end: 202208
  2. ENTRESTO [Suspect]
     Active Substance: SACUBITRIL\VALSARTAN
     Dosage: 0.5 DOSAGE FORM ((50 MG), Q24H
     Route: 048
     Dates: end: 20220912

REACTIONS (3)
  - Cardiac disorder [Fatal]
  - Wrong technique in product usage process [Fatal]
  - Off label use [Recovered/Resolved]

NARRATIVE: CASE EVENT DATE: 20220419
